FAERS Safety Report 4716508-5 (Version None)
Quarter: 2005Q3

REPORT INFORMATION
  Report Type: 
  Country: None (occurrence: None)
  Receive Date: 20050714
  Receipt Date: 20050704
  Transmission Date: 20060218
  Serious: Yes (Death)
  Sender: FDA-Public Use
  Company Number: 230001M05ARG

PATIENT
  Age: 48 Year
  Sex: Female

DRUGS (4)
  1. REBIF [Suspect]
     Indication: MULTIPLE SCLEROSIS
     Dosage: 44, 3 IN 1 WEEKS, SUBCUTANEOUS
     Route: 058
     Dates: start: 20020101, end: 20050701
  2. SERTRALINE HCL [Concomitant]
  3. CARBAMAZEPINE [Concomitant]
  4. ENALAPRIL [Concomitant]

REACTIONS (1)
  - SUDDEN DEATH [None]
